FAERS Safety Report 9203555 (Version 1)
Quarter: 2013Q2

REPORT INFORMATION
  Report Type: Spontaneous
  Country: CN (occurrence: CN)
  Receive Date: 20130402
  Receipt Date: 20130402
  Transmission Date: 20140414
  Serious: Yes (Other)
  Sender: FDA-Public Use
  Company Number: PHHY2013CN031631

PATIENT
  Age: 71 Year
  Sex: Male

DRUGS (1)
  1. DICLOFENAC [Suspect]
     Indication: NEURALGIA

REACTIONS (4)
  - Regurgitation [Unknown]
  - Marasmus [Unknown]
  - Hypophagia [Unknown]
  - Abdominal discomfort [Unknown]
